FAERS Safety Report 25012017 (Version 1)
Quarter: 2025Q1

REPORT INFORMATION
  Report Type: Report from Study
  Country: CA (occurrence: CA)
  Receive Date: 20250226
  Receipt Date: 20250226
  Transmission Date: 20250409
  Serious: Yes (Hospitalization, Other)
  Sender: TAKEDA
  Company Number: CA-TAKEDA-2025TUS019986

PATIENT
  Sex: Male

DRUGS (5)
  1. VEDOLIZUMAB [Suspect]
     Active Substance: VEDOLIZUMAB
     Indication: Colitis ulcerative
  2. MESALAMINE [Concomitant]
     Active Substance: MESALAMINE
  3. PENTASA [Concomitant]
     Active Substance: MESALAMINE
  4. Cortiment [Concomitant]
  5. IRON [Concomitant]
     Active Substance: IRON

REACTIONS (1)
  - Atypical pneumonia [Recovered/Resolved]
